FAERS Safety Report 5227252-2 (Version None)
Quarter: 2007Q1

REPORT INFORMATION
  Report Type: 
  Country: None (occurrence: None)
  Receive Date: 20070130
  Receipt Date: 20070122
  Transmission Date: 20070707
  Serious: Yes (Other)
  Sender: FDA-Public Use
  Company Number: 163-20785-07011169

PATIENT
  Age: 60 Year
  Sex: Male

DRUGS (7)
  1. THALOMID [Suspect]
     Indication: MULTIPLE MYELOMA
     Dosage: 100 MG, 1 IN 1 D, ORAL
     Route: 048
     Dates: start: 20060403, end: 20060410
  2. DEXAMETHASONE TAB [Suspect]
     Indication: MULTIPLE MYELOMA
     Dosage: 40 MG, DAILY X 4 DAYS EVERY 4 WEEKS, ORAL
     Route: 048
     Dates: start: 20060403, end: 20060406
  3. OXYCONTIN [Concomitant]
  4. AVANDIA [Concomitant]
  5. NAPROXEN [Concomitant]
  6. ZANTAC [Concomitant]
  7. COMBIVENT INHALER (COMBIVENT) (INHALANT) [Concomitant]

REACTIONS (3)
  - CHRONIC OBSTRUCTIVE PULMONARY DISEASE [None]
  - CONDITION AGGRAVATED [None]
  - REFUSAL OF TREATMENT BY PATIENT [None]
